FAERS Safety Report 22619827 (Version 1)
Quarter: 2023Q2

REPORT INFORMATION
  Report Type: Spontaneous
  Country: US (occurrence: None)
  Receive Date: 20230616
  Receipt Date: 20230616
  Transmission Date: 20230722
  Serious: Yes (Other)
  Sender: FDA-Public Use
  Company Number: None

PATIENT
  Age: 52 Year
  Sex: Male
  Weight: 125.1 kg

DRUGS (9)
  1. KIMYRSA [Suspect]
     Active Substance: ORITAVANCIN DIPHOSPHATE
     Indication: Osteomyelitis
     Dosage: OTHER FREQUENCY : WEEKLY X 2 DOSES;?
     Route: 041
     Dates: start: 20221226, end: 20230102
  2. 5% Dextrose 250ml [Concomitant]
     Dates: start: 20221226, end: 20230102
  3. Bimatoprost 0.01% O/S [Concomitant]
  4. Combigan O/S [Concomitant]
  5. Vitamin D3 2000 IUnit [Concomitant]
  6. Vitamin B12 1000 mcg [Concomitant]
  7. DULOXETINE [Concomitant]
     Active Substance: DULOXETINE
  8. ROSUVASTATIN [Concomitant]
     Active Substance: ROSUVASTATIN
  9. NAPROXEN [Concomitant]
     Active Substance: NAPROXEN

REACTIONS (3)
  - Dyspnoea [None]
  - Chest pain [None]
  - Infusion related reaction [None]

NARRATIVE: CASE EVENT DATE: 20230102
